FAERS Safety Report 14017299 (Version 1)
Quarter: 2017Q3

REPORT INFORMATION
  Report Type: Spontaneous
  Country: GB (occurrence: GB)
  Receive Date: 20170927
  Receipt Date: 20170927
  Transmission Date: 20171128
  Serious: Yes (Other)
  Sender: FDA-Public Use
  Company Number: GB-BAUSCH-BL-2017-028023

PATIENT
  Age: 61 Year
  Sex: Female

DRUGS (4)
  1. HYALURONIDASE [Suspect]
     Active Substance: HYALURONIDASE
     Indication: PRODUCT USED FOR UNKNOWN INDICATION
     Route: 062
  2. LIDOCAINE. [Suspect]
     Active Substance: LIDOCAINE
     Indication: LOCAL ANAESTHESIA
     Route: 062
  3. BUPIVACAINE. [Suspect]
     Active Substance: BUPIVACAINE
     Indication: LOCAL ANAESTHESIA
     Route: 062
  4. HYALURONIDASE [Suspect]
     Active Substance: HYALURONIDASE
     Dosage: MEDIAL CANTHUS TOP UP
     Route: 062

REACTIONS (2)
  - Facial paralysis [Recovered/Resolved]
  - Trigeminal palsy [Recovered/Resolved]
